FAERS Safety Report 9231221 (Version 1)
Quarter: 2013Q2

REPORT INFORMATION
  Report Type: Spontaneous
  Country: None (occurrence: US)
  Receive Date: 20130415
  Receipt Date: 20130415
  Transmission Date: 20140414
  Serious: No
  Sender: FDA-Public Use
  Company Number: US-TEVA-380259USA

PATIENT
  Sex: 0

DRUGS (2)
  1. TREANDA [Suspect]
     Dosage: 100MCG/20ML
     Route: 042
     Dates: end: 20130103
  2. RITUXAN [Suspect]

REACTIONS (1)
  - Muscle spasms [Recovered/Resolved]
